FAERS Safety Report 9676004 (Version 2)
Quarter: 2013Q4

REPORT INFORMATION
  Report Type: Report from Study
  Country: BR (occurrence: BR)
  Receive Date: 20131107
  Receipt Date: 20131126
  Transmission Date: 20140711
  Serious: Yes (Hospitalization)
  Sender: FDA-Public Use
  Company Number: PHHY2013BR125330

PATIENT
  Age: 37 Year
  Sex: Female
  Weight: 80 kg

DRUGS (4)
  1. GILENYA [Suspect]
     Indication: MULTIPLE SCLEROSIS
     Dosage: 0.5 MG, QD
     Route: 048
     Dates: start: 201310
  2. CORTICOSTEROIDS [Suspect]
  3. PURAN T4 [Concomitant]
     Dosage: 150 UG, UNK
     Dates: start: 2012
  4. METFORMIN [Concomitant]
     Dosage: 500 MG, UNK

REACTIONS (2)
  - Malaise [Recovering/Resolving]
  - Multiple sclerosis relapse [Recovering/Resolving]
